FAERS Safety Report 8456584-X (Version None)
Quarter: 2012Q2

REPORT INFORMATION
  Report Type: 
  Country: None (occurrence: None)
  Receive Date: 20120621
  Receipt Date: 20120612
  Transmission Date: 20120825
  Serious: Yes (Other)
  Sender: FDA-Public Use
  Company Number: FR-MERCK-1206USA02479

PATIENT
  Age: 81 Year
  Sex: Male

DRUGS (10)
  1. OMEPRAZOLE [Concomitant]
     Route: 065
     Dates: end: 20120402
  2. MOVIPREP [Concomitant]
     Route: 065
  3. SINEMET CR [Suspect]
     Indication: PARKINSONISM
     Route: 048
     Dates: start: 20110101
  4. AZILECT [Suspect]
     Indication: PARKINSONISM
     Route: 048
     Dates: end: 20120402
  5. DIHYDROERGOTAMINE MESYLATE [Concomitant]
     Route: 065
     Dates: end: 20120402
  6. ACETAMINOPHEN [Concomitant]
     Route: 065
  7. MIDODRINE HYDROCHLORIDE [Concomitant]
     Route: 065
     Dates: end: 20120402
  8. CYMBALTA [Concomitant]
     Route: 065
     Dates: end: 20120402
  9. SINEMET CR [Suspect]
     Route: 048
     Dates: start: 20110101
  10. LYRICA [Concomitant]
     Route: 065
     Dates: end: 20120402

REACTIONS (1)
  - PHAEOCHROMOCYTOMA [None]
